FAERS Safety Report 19680298 (Version 1)
Quarter: 2021Q3

REPORT INFORMATION
  Report Type: Spontaneous
  Country: US (occurrence: US)
  Receive Date: 20210810
  Receipt Date: 20210810
  Transmission Date: 20211014
  Serious: No
  Sender: FDA-Public Use
  Company Number: None

PATIENT
  Age: 66 Year
  Sex: Female
  Weight: 68.85 kg

DRUGS (1)
  1. REGEN?COV [Suspect]
     Active Substance: CASIRIVIMAB\IMDEVIMAB
     Dosage: ?          OTHER FREQUENCY:ONE TIME;?
     Route: 042
     Dates: start: 20210806, end: 20210806

REACTIONS (6)
  - Oxygen saturation decreased [None]
  - Hypotension [None]
  - Infusion related reaction [None]
  - Dizziness [None]
  - Tremor [None]
  - Nausea [None]

NARRATIVE: CASE EVENT DATE: 20210806
